FAERS Safety Report 14248720 (Version 2)
Quarter: 2018Q1

REPORT INFORMATION
  Report Type: Spontaneous
  Country: US (occurrence: US)
  Receive Date: 20171204
  Receipt Date: 20180108
  Transmission Date: 20180508
  Serious: No
  Sender: FDA-Public Use
  Company Number: US-009507513-1711USA004470

PATIENT
  Age: 23 Year
  Sex: Female

DRUGS (1)
  1. NEXPLANON [Suspect]
     Active Substance: ETONOGESTREL
     Indication: CONTRACEPTION
     Dosage: 68MG, LEFT ARM
     Route: 059
     Dates: start: 20170731

REACTIONS (10)
  - Acne [Unknown]
  - Breast pain [Unknown]
  - Implant site pain [Not Recovered/Not Resolved]
  - Amenorrhoea [Unknown]
  - Uterine cervical pain [Unknown]
  - Body mass index abnormal [Unknown]
  - Human papilloma virus test positive [Unknown]
  - Chlamydia test positive [Unknown]
  - Migraine [Unknown]
  - Limb discomfort [Not Recovered/Not Resolved]

NARRATIVE: CASE EVENT DATE: 2017
